FAERS Safety Report 4955668-8 (Version None)
Quarter: 2006Q1

REPORT INFORMATION
  Report Type: 
  Country: None (occurrence: None)
  Receive Date: 20060328
  Receipt Date: 20050414
  Transmission Date: 20060701
  Serious: Yes (Hospitalization)
  Sender: FDA-Public Use
  Company Number: US-MERCK-0504USA02406

PATIENT
  Sex: Female
  Weight: 95 kg

DRUGS (4)
  1. PREDNISONE [Concomitant]
     Route: 065
  2. ALBUTEROL [Concomitant]
     Route: 065
  3. VIOXX [Suspect]
     Indication: OSTEOARTHRITIS
     Route: 048
     Dates: start: 20020601, end: 20040901
  4. VASOTEC RPD [Concomitant]
     Route: 065

REACTIONS (4)
  - CHEST PAIN [None]
  - GASTROOESOPHAGEAL REFLUX DISEASE [None]
  - HEART RATE IRREGULAR [None]
  - PALPITATIONS [None]
